FAERS Safety Report 15277430 (Version 1)
Quarter: 2018Q3

REPORT INFORMATION
  Report Type: Spontaneous
  Country: US (occurrence: US)
  Receive Date: 20180730
  Receipt Date: 20180730
  Transmission Date: 20181010
  Serious: No
  Sender: FDA-Public Use
  Company Number: None

PATIENT
  Age: 30 Year
  Sex: Female
  Weight: 127.8 kg

DRUGS (2)
  1. SPRYCEL [Concomitant]
     Active Substance: DASATINIB
     Dates: start: 20150513
  2. SPRYCEL [Suspect]
     Active Substance: DASATINIB
     Indication: WHITE BLOOD CELL COUNT INCREASED
     Route: 048
     Dates: start: 20150513

REACTIONS (1)
  - Seizure [None]

NARRATIVE: CASE EVENT DATE: 20180730
